FAERS Safety Report 4716375-X (Version None)
Quarter: 2005Q3

REPORT INFORMATION
  Report Type: 
  Country: None (occurrence: None)
  Receive Date: 20050714
  Receipt Date: 20050629
  Transmission Date: 20060218
  Serious: Yes (Hospitalization)
  Sender: FDA-Public Use
  Company Number: 2005AL002500

PATIENT
  Age: 61 Year
  Sex: Male
  Weight: 102.9665 kg

DRUGS (4)
  1. ALPRAZOLAM [Suspect]
     Indication: ANXIETY
     Dosage: 0.5 MG; TID; PO
     Route: 048
     Dates: start: 20041101
  2. ALCOHOL [Suspect]
  3. INSULIN [Concomitant]
  4. GLYBURIDE [Concomitant]

REACTIONS (8)
  - ABNORMAL DREAMS [None]
  - ACCIDENT AT HOME [None]
  - BLOOD ALCOHOL INCREASED [None]
  - FALL [None]
  - GUN SHOT WOUND [None]
  - HALLUCINATION, VISUAL [None]
  - LIMB INJURY [None]
  - SUICIDE ATTEMPT [None]
